FAERS Safety Report 5022463-3 (Version None)
Quarter: 2006Q2

REPORT INFORMATION
  Report Type: 
  Country: None (occurrence: None)
  Receive Date: 20060609
  Receipt Date: 20060601
  Transmission Date: 20061013
  Serious: Yes (Other)
  Sender: FDA-Public Use
  Company Number: FR-ROCHE-450519

PATIENT
  Age: 60 Year
  Sex: Female
  Weight: 68 kg

DRUGS (2)
  1. XENICAL [Suspect]
     Indication: DRUG USE FOR UNKNOWN INDICATION
     Route: 065
  2. ART 50 [Concomitant]

REACTIONS (4)
  - FATIGUE [None]
  - MYALGIA [None]
  - TRANSAMINASES INCREASED [None]
  - UNEVALUABLE EVENT [None]
